FAERS Safety Report 15680820 (Version 1)
Quarter: 2018Q4

REPORT INFORMATION
  Report Type: Spontaneous
  Country: US (occurrence: US)
  Receive Date: 20181202
  Receipt Date: 20181202
  Transmission Date: 20190205
  Serious: Yes (Other)
  Sender: FDA-Public Use
  Company Number: None

PATIENT
  Age: 29 Year
  Sex: Female
  Weight: 56.7 kg

DRUGS (1)
  1. XULANE [Suspect]
     Active Substance: ETHINYL ESTRADIOL\NORELGESTROMIN
     Indication: CONTRACEPTION
     Dosage: ?          OTHER FREQUENCY:1 A WEEK;?
     Route: 061
     Dates: start: 20160601, end: 20181101

REACTIONS (4)
  - Burning sensation [None]
  - Pruritus [None]
  - Swelling [None]
  - Feeling hot [None]

NARRATIVE: CASE EVENT DATE: 20181101
